FAERS Safety Report 23301733 (Version 2)
Quarter: 2023Q4

REPORT INFORMATION
  Report Type: Spontaneous
  Country: KR (occurrence: KR)
  Receive Date: 20231215
  Receipt Date: 20231222
  Transmission Date: 20240110
  Serious: Yes (Other)
  Sender: FDA-Public Use
  Company Number: KR-ARBOR PHARMACEUTICALS, LLC-KR-2023ARB005015

PATIENT
  Age: 11 Year
  Sex: Female
  Weight: 38 kg

DRUGS (9)
  1. TRIPTODUR [Suspect]
     Active Substance: TRIPTORELIN
     Indication: Precocious puberty
     Dosage: 10 YR TO 10 YR 11 MONTH (11.25 MG,12 WK)
     Route: 065
  2. TRIPTODUR [Suspect]
     Active Substance: TRIPTORELIN
     Indication: Growth retardation
  3. TRIPTODUR [Suspect]
     Active Substance: TRIPTORELIN
     Indication: Precocious puberty
     Dosage: 6YEARS 6 MONTH OLD TO 9 YEARS 11 MONTH OLD
     Route: 065
  4. TRIPTODUR [Suspect]
     Active Substance: TRIPTORELIN
     Indication: Growth retardation
  5. TRIPTODUR [Suspect]
     Active Substance: TRIPTORELIN
  6. TRIPTODUR [Suspect]
     Active Substance: TRIPTORELIN
  7. NORDITROPIN [Suspect]
     Active Substance: SOMATROPIN
     Indication: Precocious puberty
     Dosage: 0.31 MG/KG, 1 WEEK
     Route: 065
  8. LEVOTHYROXINE [Concomitant]
     Active Substance: LEVOTHYROXINE
     Indication: Hypothyroidism
     Dosage: 50 MCG,1 D
  9. LEVOTHYROXINE [Concomitant]
     Active Substance: LEVOTHYROXINE
     Dosage: 25 MCG,1 D

REACTIONS (1)
  - Epiphysiolysis [Recovered/Resolved]
